FAERS Safety Report 8348850-3 (Version None)
Quarter: 2012Q2

REPORT INFORMATION
  Report Type: 
  Country: None (occurrence: None)
  Receive Date: 20120508
  Receipt Date: 20120423
  Transmission Date: 20120825
  Serious: Yes (Death)
  Sender: FDA-Public Use
  Company Number: JPI-P-014572

PATIENT
  Age: 41 Year
  Sex: Female
  Weight: 54.4316 kg

DRUGS (10)
  1. UNSPECIFIED ANTI-ANXIETY MEDICATION [Concomitant]
  2. LORAZEPAM [Concomitant]
  3. METAXALONE [Concomitant]
  4. PREGABALIN [Concomitant]
  5. XYREM [Suspect]
     Indication: SOMNOLENCE
     Dosage: ORAL, 8.5 GM (42.5 GM, 2 IN 1 D), ORAL
     Route: 048
     Dates: start: 20080101
  6. XYREM [Suspect]
     Indication: INSOMNIA
     Dosage: ORAL, 8.5 GM (42.5 GM, 2 IN 1 D), ORAL
     Route: 048
     Dates: start: 20080101
  7. XYREM [Suspect]
     Indication: FIBROMYALGIA
     Dosage: ORAL, 8.5 GM (42.5 GM, 2 IN 1 D), ORAL
     Route: 048
     Dates: start: 20080101
  8. XYREM [Suspect]
     Indication: SOMNOLENCE
     Dosage: ORAL, 8.5 GM (42.5 GM, 2 IN 1 D), ORAL
     Route: 048
     Dates: end: 20110324
  9. XYREM [Suspect]
     Indication: INSOMNIA
     Dosage: ORAL, 8.5 GM (42.5 GM, 2 IN 1 D), ORAL
     Route: 048
     Dates: end: 20110324
  10. XYREM [Suspect]
     Indication: FIBROMYALGIA
     Dosage: ORAL, 8.5 GM (42.5 GM, 2 IN 1 D), ORAL
     Route: 048
     Dates: end: 20110324

REACTIONS (10)
  - FEELING JITTERY [None]
  - SUDDEN DEATH [None]
  - SENSITIVITY OF TEETH [None]
  - DIARRHOEA [None]
  - ASTHENIA [None]
  - PANIC ATTACK [None]
  - ANXIETY [None]
  - TOOTH EROSION [None]
  - HEART RATE INCREASED [None]
  - DRUG INTERACTION [None]
